FAERS Safety Report 6480336-3 (Version None)
Quarter: 2009Q4

REPORT INFORMATION
  Report Type: 
  Country: None (occurrence: None)
  Receive Date: 20091202
  Receipt Date: 20091130
  Transmission Date: 20100525
  Serious: Yes (Other)
  Sender: FDA-Public Use
  Company Number: 1000009706

PATIENT
  Age: 34 Year
  Sex: Female

DRUGS (21)
  1. SAVELLA [Suspect]
     Indication: FIBROMYALGIA
     Dosage: 12.5 MG (12.5 MG, 1 IN 1 D), ORAL; 25 NG *12,5 NGM 2 IN 1 D), ORAL
     Route: 048
     Dates: start: 20091023, end: 20091023
  2. SAVELLA [Suspect]
     Indication: FIBROMYALGIA
     Dosage: 12.5 MG (12.5 MG, 1 IN 1 D), ORAL; 25 NG *12,5 NGM 2 IN 1 D), ORAL
     Route: 048
     Dates: start: 20091024, end: 20091025
  3. SAVELLA [Suspect]
     Indication: FIBROMYALGIA
     Dosage: 50 MG, (25 MG, 2 IN 1 D), ORAL
     Route: 048
     Dates: start: 20091026, end: 20091026
  4. ALBUTEROL (INHALANT) [Concomitant]
  5. ASACOL (400 MILLIGRAM, TABLETS) [Concomitant]
  6. ASPIRIN (81 MILLIGRAM, TABLETS) [Concomitant]
  7. DARVOCET-N 100 [Concomitant]
  8. PERCOCET [Concomitant]
  9. PROZAC (40 MILLIGRAM, TABLETS) [Concomitant]
  10. SYNTHROID [Concomitant]
  11. ZYRTEC (10 MILLIGRAM, TABLETS) [Concomitant]
  12. MAXALT (10 MILLIGRAM, TABLETS) [Concomitant]
  13. LIDODERM (POULTICE OR PATCH) [Concomitant]
  14. FLEXERIL [Concomitant]
  15. XANAX [Concomitant]
  16. OMEPRAZOLE (40 MILLIGRAM, TABLETS) [Concomitant]
  17. CALCIUM (600 MILLIGRAM, TABLETS) [Concomitant]
  18. FLAXSEED OIL (CAPSULES) [Concomitant]
  19. FOLIC ACID TAB [Concomitant]
  20. MAGNESIUM OXIDE (400 MILLIGRAM, TABLETS) [Concomitant]
  21. PRENATAL VITAMINS (TABLETS) [Concomitant]

REACTIONS (2)
  - HOMICIDAL IDEATION [None]
  - PANIC ATTACK [None]
